FAERS Safety Report 11361058 (Version 2)
Quarter: 2015Q3

REPORT INFORMATION
  Report Type: Spontaneous
  Country: US (occurrence: US)
  Receive Date: 20150810
  Receipt Date: 20150818
  Transmission Date: 20151125
  Serious: Yes (Other)
  Sender: FDA-Public Use
  Company Number: US-PFIZER INC-2015263337

PATIENT
  Age: 57 Year
  Sex: Female
  Weight: 41 kg

DRUGS (7)
  1. AMLODIPINE [Concomitant]
     Active Substance: AMLODIPINE BESYLATE
     Indication: HYPERTENSION
     Dosage: 10 MG, 1X/DAY (IN MORNING)
     Route: 048
     Dates: start: 2004
  2. ATENOLOL. [Concomitant]
     Active Substance: ATENOLOL
     Indication: HYPERTENSION
     Dosage: 100 MG, 1X/DAY (IN MORNING)
     Route: 048
     Dates: start: 2004
  3. OXYCONTIN [Concomitant]
     Active Substance: OXYCODONE HYDROCHLORIDE
     Indication: PAIN
     Dosage: 10 MG, 2X/DAY (IN MORNING AND EVENING)
     Route: 048
     Dates: start: 2005
  4. LYRICA [Suspect]
     Active Substance: PREGABALIN
     Indication: PAIN IN EXTREMITY
     Dosage: 200 MG, DAILY
     Route: 048
  5. LYRICA [Suspect]
     Active Substance: PREGABALIN
     Dosage: UNK
     Route: 048
     Dates: end: 20150802
  6. PHENOBARBITAL. [Concomitant]
     Active Substance: PHENOBARBITAL
     Indication: SEIZURE
     Dosage: 120 MG, 1X/DAY (AT NIGHT)
     Route: 048
     Dates: start: 2008
  7. LYRICA [Suspect]
     Active Substance: PREGABALIN
     Indication: FIBROMYALGIA
     Dosage: 50 MG, 3X/DAY, ONE IN THE MORNING, TWO IN THE AFTERNOON AND ONE IN THE EVENING
     Route: 048
     Dates: start: 2008

REACTIONS (8)
  - Agitation [Unknown]
  - Mood altered [Unknown]
  - Optic neuritis [Unknown]
  - Drug ineffective [Unknown]
  - Osteoarthritis [Unknown]
  - Condition aggravated [Unknown]
  - Limb deformity [Unknown]
  - Asthenia [Unknown]

NARRATIVE: CASE EVENT DATE: 2010
